FAERS Safety Report 7040709-7 (Version None)
Quarter: 2010Q4

REPORT INFORMATION
  Report Type: 
  Country: None (occurrence: None)
  Receive Date: 20101013
  Receipt Date: 20101004
  Transmission Date: 20110411
  Serious: Yes (Death)
  Sender: FDA-Public Use
  Company Number: US-BIOGENIDEC-2010BI032745

PATIENT
  Sex: Female

DRUGS (2)
  1. AVONEX [Suspect]
     Indication: MULTIPLE SCLEROSIS
     Route: 030
     Dates: start: 20031001
  2. AVONEX [Suspect]
     Route: 030
     Dates: start: 19970101, end: 20030901

REACTIONS (2)
  - MULTIPLE SCLEROSIS [None]
  - NEOPLASM MALIGNANT [None]
